FAERS Safety Report 7339725-7 (Version None)
Quarter: 2011Q1

REPORT INFORMATION
  Report Type: 
  Country: None (occurrence: None)
  Receive Date: 20110309
  Receipt Date: 20110225
  Transmission Date: 20110831
  Serious: Yes (Hospitalization, Other)
  Sender: FDA-Public Use
  Company Number: DE-ELI_LILLY_AND_COMPANY-DE201102007100

PATIENT
  Age: 81 Year
  Sex: Male

DRUGS (6)
  1. CALCIUM [Concomitant]
  2. PREDNISOLONE [Concomitant]
  3. ANTIHYPERTENSIVES [Concomitant]
  4. FORTEO [Suspect]
     Indication: OSTEOPOROSIS
     Route: 058
     Dates: start: 20100824
  5. VITAMIN D [Concomitant]
  6. METHOTREXATE [Concomitant]

REACTIONS (2)
  - BONE MARROW DISORDER [None]
  - ANAEMIA [None]
